FAERS Safety Report 7441027-5 (Version None)
Quarter: 2011Q2

REPORT INFORMATION
  Report Type: 
  Country: None (occurrence: None)
  Receive Date: 20110427
  Receipt Date: 20110412
  Transmission Date: 20111010
  Serious: Yes (Hospitalization, Other)
  Sender: FDA-Public Use
  Company Number: GB-AMGEN-QUU419232

PATIENT
  Age: 55 Year
  Sex: Female
  Weight: 90 kg

DRUGS (9)
  1. METHOTREXATE [Concomitant]
     Dosage: UNK UNK, UNK
  2. ETANERCEPT [Suspect]
     Indication: RHEUMATOID ARTHRITIS
     Dosage: 25 MG, 2 TIMES/WK
     Route: 058
     Dates: start: 20051206, end: 20090515
  3. RANITIDINE [Concomitant]
     Dosage: UNK UNK, UNK
  4. LORAZEPAM [Concomitant]
     Dosage: UNK UNK, UNK
  5. FOLIC ACID [Concomitant]
     Dosage: UNK UNK, UNK
  6. NEORAL [Concomitant]
     Dosage: UNK UNK, UNK
  7. AMITRIPTYLINE [Concomitant]
     Dosage: UNK UNK, UNK
  8. LEVOTHYROXINE SODIUM [Concomitant]
     Dosage: UNK UNK, UNK
  9. PREDNISOLONE [Concomitant]
     Dosage: UNK UNK, UNK

REACTIONS (3)
  - MEGACOLON [None]
  - COLITIS [None]
  - POSTOPERATIVE WOUND INFECTION [None]
